FAERS Safety Report 8911610 (Version 1)
Quarter: 2012Q4

REPORT INFORMATION
  Report Type: 
  Country: IT (occurrence: IT)
  Receive Date: 20121116
  Receipt Date: 20121116
  Transmission Date: 20130627
  Serious: Yes (Life-Threatening, Other)
  Sender: FDA-Public Use
  Company Number: IT-PFIZER INC-2012279374

PATIENT
  Age: 63 Year
  Sex: Male

DRUGS (9)
  1. CISPLATIN [Suspect]
     Indication: ESOPHAGEAL CANCER
     Dosage: 130 mg (1 mg/ml,Cyclical)
     Route: 041
     Dates: start: 20121015, end: 20121030
  2. FLUOROURACIL [Suspect]
     Indication: ESOPHAGEAL CANCER
     Dosage: 6700 mg (50 mg/ml,Cyclical)
     Route: 041
     Dates: start: 20121015, end: 20121030
  3. TAXOTERE [Suspect]
     Indication: ESOPHAGEAL CANCER
     Dosage: 130 mg (20 mg/ml,Cyclical)
     Route: 041
     Dates: start: 20121015, end: 20121030
  4. ALOXI [Concomitant]
     Indication: PROPHYLAXIS OF NAUSEA AND VOMITING
     Dosage: 250 mcg, UNK
     Route: 040
     Dates: start: 20121015, end: 20121030
  5. DECADRON [Concomitant]
     Indication: PREMEDICATION
     Dosage: 20 mg (4 mg/ml)
     Route: 041
     Dates: start: 20121015, end: 20121030
  6. TAMSULOSIN [Concomitant]
     Indication: BENIGN PROSTATIC HYPERTROPHY
     Dosage: 0.4 mg, UNK
     Route: 048
     Dates: start: 20120101, end: 20121030
  7. TRIMETON [Concomitant]
     Indication: PREMEDICATION
     Dosage: 10 mg/ml, UNK
     Route: 041
     Dates: start: 20121015, end: 20121030
  8. ESOMEPRAZOLE [Concomitant]
     Indication: GASTRIC ULCER PROPHYLAXIS
     Dosage: 40 mg, UNK
     Route: 048
     Dates: start: 20120901, end: 20121030
  9. ZANTAC [Concomitant]
     Indication: PREMEDICATION
     Dosage: 10 mg/ml, UNK
     Route: 041
     Dates: start: 20121015, end: 20121030

REACTIONS (5)
  - Diarrhoea [Recovering/Resolving]
  - Nausea [Recovering/Resolving]
  - Weight decreased [Recovering/Resolving]
  - Leukopenia [Recovered/Resolved]
  - Neutropenia [Recovered/Resolved]
